FAERS Safety Report 9370572 (Version 6)
Quarter: 2013Q4

REPORT INFORMATION
  Report Type: Spontaneous
  Country: US (occurrence: US)
  Receive Date: 20130626
  Receipt Date: 20131023
  Transmission Date: 20140711
  Serious: Yes (Death, Hospitalization, Other)
  Sender: FDA-Public Use
  Company Number: US-009507513-1306USA012243

PATIENT
  Sex: Female
  Weight: 61.68 kg

DRUGS (8)
  1. JANUMET [Suspect]
     Indication: TYPE 2 DIABETES MELLITUS
     Dosage: UNK UNK, BID
     Route: 048
     Dates: start: 20120605
  2. JANUVIA [Suspect]
     Indication: TYPE 2 DIABETES MELLITUS
     Dosage: UNK
     Route: 048
     Dates: start: 20080509, end: 200807
  3. BYETTA [Suspect]
     Indication: TYPE 2 DIABETES MELLITUS
     Dosage: 5 MG, BID
     Dates: start: 20060605, end: 20080219
  4. BYETTA [Suspect]
     Dosage: 10 MG, BID
     Dates: start: 20060605, end: 20080219
  5. METFORMIN [Concomitant]
     Indication: TYPE 2 DIABETES MELLITUS
  6. LANTUS [Concomitant]
     Indication: TYPE 2 DIABETES MELLITUS
     Dosage: 15 DF, HS
  7. NOVOLOG [Concomitant]
     Indication: TYPE 2 DIABETES MELLITUS
     Dosage: SLIDING SCALE TID
  8. GLIPIZIDE [Concomitant]
     Indication: TYPE 2 DIABETES MELLITUS
     Dosage: UNK

REACTIONS (23)
  - Pancreatic carcinoma [Fatal]
  - Metastases to lung [Unknown]
  - Pulmonary embolism [Unknown]
  - Colon cancer [Unknown]
  - Rectal haemorrhage [Unknown]
  - Hip fracture [Unknown]
  - Open reduction of fracture [Unknown]
  - Femur fracture [Unknown]
  - Abnormal loss of weight [Unknown]
  - Iron deficiency anaemia [Unknown]
  - Malnutrition [Unknown]
  - Diabetes mellitus inadequate control [Unknown]
  - Dermal cyst [Unknown]
  - Hypokalaemia [Unknown]
  - Hypothyroidism [Unknown]
  - Appendicectomy [Unknown]
  - Nephrolithiasis [Unknown]
  - Renal stone removal [Unknown]
  - Blood cholesterol increased [Unknown]
  - Herpes zoster [Unknown]
  - Hypertension [Unknown]
  - Abdominal discomfort [Unknown]
  - Nausea [Unknown]
